FAERS Safety Report 24694942 (Version 1)
Quarter: 2024Q4

REPORT INFORMATION
  Report Type: Spontaneous
  Country: US (occurrence: None)
  Receive Date: 20241203
  Receipt Date: 20241203
  Transmission Date: 20250115
  Serious: Yes (Other)
  Sender: Public
  Company Number: None

PATIENT
  Sex: Male

DRUGS (1)
  1. TIMOLOL [Suspect]
     Active Substance: TIMOLOL\TIMOLOL MALEATE
     Indication: Glaucoma
     Dosage: OTHER QUANTITY : 1 DROP;?OTHER FREQUENCY : MORNING ;?OTHER ROUTE : INTO THE EYE ;?
     Route: 050

REACTIONS (2)
  - Product dispensing error [None]
  - Product storage error [None]

NARRATIVE: CASE EVENT DATE: 20241126
